FAERS Safety Report 13774647 (Version 2)
Quarter: 2017Q3

REPORT INFORMATION
  Report Type: Spontaneous
  Country: US (occurrence: US)
  Receive Date: 20170720
  Receipt Date: 20170920
  Transmission Date: 20171127
  Serious: No
  Sender: FDA-Public Use
  Company Number: US-RECKITT BENCKISER HEALTHCARE INT LIMITED-RB-94551-2016

PATIENT
  Sex: Male

DRUGS (2)
  1. MUCINEX DM MAXIMUM STRENGTH [Suspect]
     Active Substance: DEXTROMETHORPHAN HYDROBROMIDE\GUAIFENESIN
     Indication: INSOMNIA
     Dosage: UNK, HAD BEEN TAKING THE PRODUCT FOR THREE YEARS AT NIGHT TIME.
     Route: 065
     Dates: start: 2014
  2. MUCINEX [Suspect]
     Active Substance: GUAIFENESIN
     Indication: PRODUCT USED FOR UNKNOWN INDICATION
     Dosage: UNK, HAD BEEN TAKING THE PRODUCT FOR THREE YEARS AT DAY TIME.
     Route: 065
     Dates: start: 2014

REACTIONS (2)
  - Product use in unapproved indication [Unknown]
  - Incorrect drug administration duration [Unknown]
